FAERS Safety Report 8276993-1 (Version None)
Quarter: 2012Q2

REPORT INFORMATION
  Report Type: 
  Country: None (occurrence: None)
  Receive Date: 20120406
  Receipt Date: 20120116
  Transmission Date: 20120825
  Serious: Yes (Other)
  Sender: FDA-Public Use
  Company Number: 2012SP002652

PATIENT
  Age: 50 Year
  Sex: Male

DRUGS (3)
  1. PEGASYS [Suspect]
     Indication: HEPATITIS C
     Dosage: 180 MCG;QW
     Dates: start: 20110901
  2. COPEGUS [Suspect]
     Indication: HEPATITIS C
     Dosage: 400 MG;TID;PO
     Route: 048
     Dates: start: 20110901
  3. VICTRELIS [Suspect]
     Indication: HEPATITIS C
     Dosage: 80 MG;QD;PO
     Route: 048
     Dates: start: 20110929

REACTIONS (3)
  - DERMATITIS EXFOLIATIVE [None]
  - OEDEMA PERIPHERAL [None]
  - RASH [None]
